FAERS Safety Report 21459583 (Version 1)
Quarter: 2022Q4

REPORT INFORMATION
  Report Type: Spontaneous
  Country: US (occurrence: None)
  Receive Date: 20221014
  Receipt Date: 20221014
  Transmission Date: 20230113
  Serious: No
  Sender: FDA-Public Use
  Company Number: None

PATIENT
  Age: 50 Year
  Sex: Female
  Weight: 85.5 kg

DRUGS (1)
  1. TALTZ [Suspect]
     Active Substance: IXEKIZUMAB
     Indication: Psoriasis
     Dates: start: 20221003, end: 20221003

REACTIONS (6)
  - Pruritus [None]
  - Urticaria [None]
  - Rash [None]
  - Injection site pain [None]
  - Oropharyngeal pain [None]
  - Swelling [None]

NARRATIVE: CASE EVENT DATE: 20221006
